FAERS Safety Report 6890907-8 (Version None)
Quarter: 2010Q3

REPORT INFORMATION
  Report Type: 
  Country: None (occurrence: None)
  Receive Date: 20100731
  Receipt Date: 20090408
  Transmission Date: 20110219
  Serious: No
  Sender: FDA-Public Use
  Company Number: US-PFIZER INC-2008151756

PATIENT
  Sex: Female
  Weight: 61.2 kg

DRUGS (3)
  1. LIPITOR [Suspect]
     Indication: LIPIDS INCREASED
     Dosage: 40 MG, 1X/DAY
  2. TOPROL-XL [Concomitant]
     Indication: HYPERTENSION
     Dosage: 50 MG/DAY
  3. ACETYLSALICYLIC ACID [Concomitant]
     Dosage: 325 MG/DAY

REACTIONS (2)
  - BLOOD BILIRUBIN INCREASED [None]
  - HIGH DENSITY LIPOPROTEIN DECREASED [None]
